FAERS Safety Report 12712569 (Version 8)
Quarter: 2017Q3

REPORT INFORMATION
  Report Type: Spontaneous
  Country: US (occurrence: US)
  Receive Date: 20160902
  Receipt Date: 20170828
  Transmission Date: 20171127
  Serious: Yes (Hospitalization, Congenital Anomaly, Other)
  Sender: FDA-Public Use
  Company Number: PHEH2016US022179

PATIENT
  Sex: Male

DRUGS (1)
  1. ZOFRAN [Suspect]
     Active Substance: ONDANSETRON HYDROCHLORIDE
     Indication: FOETAL EXPOSURE DURING PREGNANCY
     Route: 064

REACTIONS (27)
  - Right ventricular dilatation [Unknown]
  - Fungal skin infection [Unknown]
  - Dysuria [Unknown]
  - Heart disease congenital [Unknown]
  - Congenital anomaly [Unknown]
  - Left-to-right cardiac shunt [Unknown]
  - Pulmonary valve stenosis congenital [Unknown]
  - Otitis media [Unknown]
  - Micrognathia [Unknown]
  - Cardiac murmur [Unknown]
  - Decreased appetite [Unknown]
  - Tachycardia [Unknown]
  - Tricuspid valve incompetence [Unknown]
  - Bronchial hyperreactivity [Unknown]
  - Hand fracture [Unknown]
  - Right atrial enlargement [Unknown]
  - Injury [Unknown]
  - Oppositional defiant disorder [Unknown]
  - Acne [Unknown]
  - Bundle branch block right [Unknown]
  - Oedema [Unknown]
  - Atrial septal defect [Unknown]
  - Bronchiolitis [Unknown]
  - Pneumonia [Unknown]
  - Bipolar disorder [Unknown]
  - Depression [Unknown]
  - Foetal exposure during pregnancy [Unknown]
